FAERS Safety Report 6296322-2 (Version None)
Quarter: 2009Q3

REPORT INFORMATION
  Report Type: 
  Country: None (occurrence: None)
  Receive Date: 20090804
  Receipt Date: 20090723
  Transmission Date: 20100115
  Serious: Yes (Hospitalization)
  Sender: FDA-Public Use
  Company Number: PHHY2009FR30827

PATIENT
  Sex: Male

DRUGS (7)
  1. ZOMETA [Suspect]
     Dosage: UNK
     Route: 042
     Dates: start: 20090407
  2. NEORECORMON [Suspect]
     Dosage: UNK
     Route: 065
     Dates: start: 20090407, end: 20090411
  3. REVLIMID [Suspect]
     Indication: LIGHT CHAIN DISEASE
     Dosage: 25 MG
     Route: 048
     Dates: start: 20090408, end: 20090418
  4. REVLIMID [Suspect]
     Dosage: 25 MG
     Route: 048
     Dates: start: 20090425
  5. DEXAMETHASONE [Suspect]
     Indication: LIGHT CHAIN DISEASE
     Dosage: UNK
     Route: 065
     Dates: start: 20090408, end: 20090418
  6. DEXAMETHASONE [Suspect]
     Dosage: UNK
     Route: 065
     Dates: start: 20090425
  7. VASTEN [Concomitant]
     Dosage: UNK
     Route: 065

REACTIONS (4)
  - ABDOMINAL PAIN [None]
  - COLITIS [None]
  - PERITONEAL EFFUSION [None]
  - RECTAL HAEMORRHAGE [None]
